FAERS Safety Report 14379727 (Version 2)
Quarter: 2018Q1

REPORT INFORMATION
  Report Type: Spontaneous
  Country: CH (occurrence: CH)
  Receive Date: 20180112
  Receipt Date: 20180117
  Transmission Date: 20180509
  Serious: Yes (Death, Hospitalization)
  Sender: FDA-Public Use
  Company Number: CH-ASTRAZENECA-2018SE01880

PATIENT
  Age: 33803 Day
  Sex: Female
  Weight: 72 kg

DRUGS (11)
  1. PONSTAN [Interacting]
     Active Substance: MEFENAMIC ACID
     Indication: PAIN
     Dosage: 500.0MG UNKNOWN
     Route: 048
     Dates: start: 20170522, end: 20170529
  2. CONCOR [Concomitant]
     Active Substance: BISOPROLOL FUMARATE
  3. SYMBICORT [Concomitant]
     Active Substance: BUDESONIDE\FORMOTEROL FUMARATE DIHYDRATE
  4. ASPIRIN CARDIO [Interacting]
     Active Substance: ASPIRIN
     Indication: CORONARY ARTERY DISEASE
     Route: 048
     Dates: start: 2017, end: 20170602
  5. JANUVIA [Concomitant]
     Active Substance: SITAGLIPTIN PHOSPHATE
  6. TORASEMIDE [Concomitant]
     Active Substance: TORSEMIDE
  7. MAGNESIUM [Concomitant]
     Active Substance: MAGNESIUM
  8. DANCOR [Interacting]
     Active Substance: NICORANDIL
     Indication: CORONARY ARTERY DISEASE
     Route: 048
     Dates: start: 2017, end: 20170531
  9. ATACAND [Suspect]
     Active Substance: CANDESARTAN CILEXETIL
     Indication: HYPERTENSION
     Dosage: 16.0MG UNKNOWN
     Route: 048
     Dates: start: 2017, end: 20170530
  10. STILNOX [Concomitant]
     Active Substance: ZOLPIDEM TARTRATE
  11. LANTUS [Concomitant]
     Active Substance: INSULIN GLARGINE

REACTIONS (2)
  - Upper gastrointestinal haemorrhage [Recovered/Resolved]
  - Acute kidney injury [Fatal]

NARRATIVE: CASE EVENT DATE: 20170522
